FAERS Safety Report 9052078 (Version 1)
Quarter: 2013Q1

REPORT INFORMATION
  Report Type: Spontaneous
  Country: US (occurrence: US)
  Receive Date: 20130206
  Receipt Date: 20130206
  Transmission Date: 20140127
  Serious: Yes (Hospitalization)
  Sender: FDA-Public Use
  Company Number: US-BIOGENIDEC-2013BI010271

PATIENT
  Age: 82 Year
  Sex: Male

DRUGS (2)
  1. TYSABRI [Suspect]
     Indication: MULTIPLE SCLEROSIS
     Route: 042
     Dates: start: 20111025, end: 201208
  2. COUMADIN [Concomitant]
     Indication: HEART VALVE REPLACEMENT

REACTIONS (7)
  - Memory impairment [Unknown]
  - Bladder mass [Recovered/Resolved]
  - Post procedural haemorrhage [Recovered/Resolved]
  - Bladder cancer stage III [Recovered/Resolved]
  - Weight decreased [Not Recovered/Not Resolved]
  - Cellulitis [Recovered/Resolved]
  - Cystitis [Recovered/Resolved]
